FAERS Safety Report 6022083-8 (Version None)
Quarter: 2008Q4

REPORT INFORMATION
  Report Type: 
  Country: None (occurrence: None)
  Receive Date: 20081223
  Receipt Date: 20081208
  Transmission Date: 20090506
  Serious: Yes (Hospitalization)
  Sender: FDA-Public Use
  Company Number: KV200801014

PATIENT
  Age: 60 Year
  Sex: Male
  Weight: 74.8 kg

DRUGS (4)
  1. MORPHINE SULFATE [Suspect]
     Indication: BACK PAIN
     Dosage: 15 MG,1 TABLET EVERY 8 HOURS
     Dates: start: 20010101
  2. LUNESTA [Concomitant]
  3. CYMBALTA [Concomitant]
  4. LYRICA [Concomitant]

REACTIONS (6)
  - BLOOD PRESSURE INCREASED [None]
  - CHEST PAIN [None]
  - CONFUSIONAL STATE [None]
  - DIZZINESS [None]
  - PRODUCT QUALITY ISSUE [None]
  - SOMNOLENCE [None]
